FAERS Safety Report 8809599 (Version 3)
Quarter: 2012Q4

REPORT INFORMATION
  Report Type: Report from Study
  Country: JP (occurrence: JP)
  Receive Date: 20120926
  Receipt Date: 20121203
  Transmission Date: 20130627
  Serious: Yes (Other)
  Sender: FDA-Public Use
  Company Number: JP-VERTEX PHARMACEUTICAL INC.-AE-2012-008215

PATIENT
  Age: 56 Year
  Sex: Male

DRUGS (16)
  1. VX-950 (TELAPREVIR) [Suspect]
     Indication: CHRONIC HEPATITIS C
     Dosage: 1500 mg, qd
     Route: 048
     Dates: start: 20120409, end: 20120521
  2. REBETOL [Suspect]
     Indication: CHRONIC HEPATITIS C
     Dosage: 600 mg, qd
     Route: 048
     Dates: start: 20120409, end: 20120425
  3. REBETOL [Suspect]
     Dosage: 400 mg, qd
     Route: 048
     Dates: start: 20120426, end: 20120527
  4. REBETOL [Suspect]
     Dosage: 200 mg and 400 mg (1 capsule and 2 capsules) on alternate days
     Route: 048
     Dates: start: 20120528, end: 20120611
  5. PEGINTRON [Suspect]
     Indication: CHRONIC HEPATITIS C
     Dosage: 1.5 ?g/kg, week
     Route: 058
     Dates: start: 20120409, end: 20120514
  6. PEGINTRON [Suspect]
     Dosage: 1.1 ?g/kg, week
     Route: 058
     Dates: start: 20120521, end: 20120604
  7. RINDERON  V                        /00008501/ [Concomitant]
     Dosage: UNK, prn
     Route: 061
     Dates: start: 20120413, end: 20120506
  8. DERMOVATE SCALP [Concomitant]
     Dosage: UNK, prn
     Route: 051
     Dates: start: 20120507, end: 20120701
  9. ALLEGRA [Concomitant]
     Dosage: 120 mg, qd
     Route: 048
     Dates: start: 20120507, end: 20120513
  10. ALLEGRA [Concomitant]
     Dosage: 240 mg, qd
     Route: 048
     Dates: start: 20120514, end: 20120701
  11. XYZAL [Concomitant]
     Dosage: 5 mg, qd
     Route: 048
     Dates: start: 20120514, end: 20120701
  12. DIFLAL [Concomitant]
     Dosage: UNK, qd
     Route: 061
     Dates: start: 20120521, end: 20120701
  13. MYSLEE [Concomitant]
     Dosage: 10 mg, prn
     Route: 048
     Dates: start: 20120521
  14. NAUZELIN [Concomitant]
     Dosage: 60 mg, prn
     Route: 054
     Dates: start: 20120529, end: 20120611
  15. ALOSITOL [Concomitant]
     Dosage: 200 mg, qd
     Route: 048
  16. DEPAS [Concomitant]
     Dosage: 1 mg, qd
     Route: 048
     Dates: start: 20120521

REACTIONS (1)
  - Retinopathy [Recovered/Resolved]
